FAERS Safety Report 13790186 (Version 1)
Quarter: 2017Q3

REPORT INFORMATION
  Report Type: Spontaneous
  Country: SE (occurrence: SE)
  Receive Date: 20170725
  Receipt Date: 20170725
  Transmission Date: 20171127
  Serious: Yes (Hospitalization, Other)
  Sender: FDA-Public Use
  Company Number: SE-PFIZER INC-2017318495

PATIENT
  Age: 36 Year
  Sex: Female

DRUGS (6)
  1. SOBRIL [Suspect]
     Active Substance: OXAZEPAM
     Dosage: UNK (SMALLER AMOUNT)
     Dates: start: 20170705, end: 20170705
  2. SIFROL [Suspect]
     Active Substance: PRAMIPEXOLE
     Dosage: 2.6 MG, UNK
     Dates: start: 20170705, end: 20170705
  3. STESOLID [Suspect]
     Active Substance: DIAZEPAM
     Dosage: UNK (SMALLER AMOUNT)
     Dates: start: 20170705, end: 20170705
  4. HALDOL [Suspect]
     Active Substance: HALOPERIDOL
     Dosage: UNK (POTENTIALLY 75 MG)
     Dates: start: 20170705, end: 20170705
  5. GABAPENTIN. [Suspect]
     Active Substance: GABAPENTIN
     Dosage: 6 G, UNK
     Dates: start: 20170705, end: 20170705
  6. SEROQUEL [Suspect]
     Active Substance: QUETIAPINE FUMARATE
     Dosage: 300 MG, UNK
     Dates: start: 20170705, end: 20170705

REACTIONS (4)
  - Toxicity to various agents [Recovered/Resolved]
  - Electrocardiogram QT prolonged [Recovered/Resolved]
  - Intentional self-injury [Recovered/Resolved]
  - Depressed level of consciousness [Recovered/Resolved]

NARRATIVE: CASE EVENT DATE: 201707
